FAERS Safety Report 10757838 (Version 1)
Quarter: 2015Q1

REPORT INFORMATION
  Report Type: Spontaneous
  Country: US (occurrence: None)
  Receive Date: 20150202
  Receipt Date: 20150202
  Transmission Date: 20150721
  Serious: Yes (Other)
  Sender: FDA-Public Use
  Company Number: None

PATIENT
  Age: 4 Year
  Sex: Female
  Weight: 15.88 kg

DRUGS (1)
  1. MIRALAX [Suspect]
     Active Substance: POLYETHYLENE GLYCOL 3350
     Indication: CONSTIPATION
     Dosage: 8.5G DISSOLVED WATER ONCE DAILY TAKEN BY MOUTH
     Route: 048
     Dates: start: 20150124, end: 20150131

REACTIONS (7)
  - Dark circles under eyes [None]
  - Asthenia [None]
  - Flank pain [None]
  - Dehydration [None]
  - Fatigue [None]
  - Irritability [None]
  - Pallor [None]

NARRATIVE: CASE EVENT DATE: 20150131
